FAERS Safety Report 8198905-1 (Version None)
Quarter: 2012Q1

REPORT INFORMATION
  Report Type: 
  Country: None (occurrence: None)
  Receive Date: 20120309
  Receipt Date: 20120229
  Transmission Date: 20120608
  Serious: Yes (Other)
  Sender: FDA-Public Use
  Company Number: US-ASTRAZENECA-2012SE08255

PATIENT
  Age: 91 Year
  Sex: Male
  Weight: 78.5 kg

DRUGS (7)
  1. FLOMAX [Concomitant]
  2. PLAVIX [Concomitant]
  3. TRAVATAN [Concomitant]
  4. SYNTHROID [Concomitant]
  5. CRESTOR [Suspect]
     Route: 048
  6. AMLODIPINE [Suspect]
  7. METOPROLOL SUCCINATE [Concomitant]

REACTIONS (1)
  - MALIGNANT MELANOMA [None]
